FAERS Safety Report 22114423 (Version 1)
Quarter: 2023Q1

REPORT INFORMATION
  Report Type: Report from Study
  Country: NL (occurrence: NL)
  Receive Date: 20230320
  Receipt Date: 20230320
  Transmission Date: 20230418
  Serious: Yes (Hospitalization)
  Sender: FDA-Public Use
  Company Number: NL-002147023-NVSC2023NL059366

PATIENT
  Sex: Female

DRUGS (1)
  1. ACLASTA [Suspect]
     Active Substance: ZOLEDRONIC ACID
     Indication: Product used for unknown indication
     Dosage: UNK, Q12MO
     Route: 042

REACTIONS (2)
  - Cystitis noninfective [Unknown]
  - Pneumonia [Unknown]

NARRATIVE: CASE EVENT DATE: 20230313
